FAERS Safety Report 12679254 (Version 1)
Quarter: 2016Q3

REPORT INFORMATION
  Report Type: Spontaneous
  Country: KR (occurrence: KR)
  Receive Date: 20160824
  Receipt Date: 20160824
  Transmission Date: 20161109
  Serious: Yes (Hospitalization, Other)
  Sender: FDA-Public Use
  Company Number: KR-CIPLA LTD.-2016KR17333

PATIENT

DRUGS (1)
  1. CARVEDILOL. [Suspect]
     Active Substance: CARVEDILOL
     Indication: HYPERTENSION
     Dosage: 25 MG, DAILY
     Route: 065

REACTIONS (6)
  - Osteopenia [Unknown]
  - Menstruation irregular [Unknown]
  - Weight increased [Unknown]
  - Cushing^s syndrome [Recovered/Resolved]
  - Drug ineffective [Unknown]
  - Adrenal adenoma [Recovered/Resolved]
